FAERS Safety Report 4407707-0 (Version None)
Quarter: 2004Q3

REPORT INFORMATION
  Report Type: 
  Country: None (occurrence: None)
  Receive Date: 20040722
  Receipt Date: 20040713
  Transmission Date: 20050211
  Serious: Yes (Hospitalization)
  Sender: FDA-Public Use
  Company Number: 04-07-1006

PATIENT
  Age: 42 Year
  Sex: Male

DRUGS (1)
  1. CLOZAPINE [Suspect]
     Indication: SCHIZOPHRENIA
     Dosage: 100-900MG QD ORAL
     Route: 048
     Dates: start: 20030701

REACTIONS (2)
  - DRUG WITHDRAWAL SYNDROME [None]
  - MEDICATION ERROR [None]
